FAERS Safety Report 7701105-X (Version None)
Quarter: 2011Q3

REPORT INFORMATION
  Report Type: 
  Country: None (occurrence: None)
  Receive Date: 20110819
  Receipt Date: 20110819
  Transmission Date: 20111222
  Serious: Yes (Hospitalization)
  Sender: FDA-Public Use
  Company Number: None

PATIENT
  Age: 34 Year
  Sex: Female
  Weight: 95.2554 kg

DRUGS (1)
  1. DEPO-PROVERA [Suspect]
     Dosage: 150 MG Q 3MONTHS INTRAMUSCULAR
     Dates: start: 20110815, end: 20110815

REACTIONS (1)
  - DEEP VEIN THROMBOSIS [None]
